FAERS Safety Report 12190872 (Version 2)
Quarter: 2016Q2

REPORT INFORMATION
  Report Type: Spontaneous
  Country: IT (occurrence: IT)
  Receive Date: 20160318
  Receipt Date: 20160428
  Transmission Date: 20160815
  Serious: Yes (Death, Hospitalization)
  Sender: FDA-Public Use
  Company Number: IT-PFIZER INC-2016152098

PATIENT
  Age: 74 Year
  Sex: Male

DRUGS (6)
  1. SUTENT [Suspect]
     Active Substance: SUNITINIB MALATE
     Indication: RENAL CANCER METASTATIC
     Dosage: 50 MG, 1X/DAY
     Route: 048
     Dates: start: 20150820, end: 20150917
  2. DESAMETASONE [Concomitant]
     Active Substance: DEXAMETHASONE
     Dosage: 6 MG, UNK
  3. NISTATINA [Concomitant]
     Active Substance: NYSTATIN
  4. TARGIN [Concomitant]
     Active Substance: NALOXONE HYDROCHLORIDE\OXYCODONE HYDROCHLORIDE
     Dosage: 3 DF, UNK
     Route: 048
  5. OMEPRAZOLE. [Concomitant]
     Active Substance: OMEPRAZOLE
     Dosage: 20 MG, UNK
  6. BROMAZEPAM [Concomitant]
     Active Substance: BROMAZEPAM
     Dosage: 15 GTT, UNK
     Route: 048

REACTIONS (2)
  - Septic shock [Fatal]
  - Stomatitis [Fatal]

NARRATIVE: CASE EVENT DATE: 20150921
